FAERS Safety Report 6354223-5 (Version None)
Quarter: 2009Q3

REPORT INFORMATION
  Report Type: 
  Country: None (occurrence: None)
  Receive Date: 20090914
  Receipt Date: 20090902
  Transmission Date: 20100115
  Serious: Yes (Disabling)
  Sender: FDA-Public Use
  Company Number: PHHY2009IT31055

PATIENT
  Sex: Female

DRUGS (9)
  1. AREDIA [Suspect]
     Indication: OSTEOPOROSIS
     Dosage: 60 MG, QMO
     Route: 042
     Dates: start: 20070301, end: 20070928
  2. LUVION [Concomitant]
     Dosage: 100 MG
     Route: 048
  3. LASIX [Concomitant]
     Dosage: 25 MG
     Route: 048
  4. DEURSIL [Concomitant]
     Dosage: 300 MG
     Route: 048
  5. LEXOTAN [Concomitant]
     Route: 065
  6. KONAKION [Concomitant]
     Route: 065
  7. FOLINA [Concomitant]
     Route: 048
  8. BENEXOL [Concomitant]
     Route: 048
  9. CACIT VITAMINE D3 [Concomitant]
     Route: 065

REACTIONS (3)
  - BONE DISORDER [None]
  - OSTEONECROSIS [None]
  - TOOTH EXTRACTION [None]
